FAERS Safety Report 7331810-9 (Version None)
Quarter: 2011Q1

REPORT INFORMATION
  Report Type: 
  Country: None (occurrence: None)
  Receive Date: 20110304
  Receipt Date: 20100422
  Transmission Date: 20110831
  Serious: Yes (Hospitalization, Other)
  Sender: FDA-Public Use
  Company Number: US-PFIZER INC-2009314348

PATIENT
  Sex: Female

DRUGS (8)
  1. DIFLUCAN [Concomitant]
     Dosage: 200 MG, 1X/DAY
     Route: 048
     Dates: start: 20090520, end: 20090601
  2. DILANTIN [Suspect]
     Dosage: 150 MG, 3X/DAY
     Route: 042
  3. LEVAQUIN [Concomitant]
     Dosage: 250 MG, UNK
     Dates: start: 20090430, end: 20090601
  4. DILANTIN [Suspect]
     Dosage: 200 MG, 3X/DAY
     Route: 042
  5. CEFTRIAXONE [Concomitant]
     Dosage: 2 G, 1X/DAY
     Route: 042
     Dates: start: 20090504, end: 20090527
  6. DILANTIN [Suspect]
     Indication: CONVULSION
     Dosage: 100 MG, 3X/DAY
     Route: 042
     Dates: start: 20090429
  7. DILANTIN-125 [Suspect]
     Indication: CONVULSION
     Dosage: UNK
     Route: 048
     Dates: end: 20090525
  8. VANCOMYCIN [Concomitant]
     Dosage: 500 MG, UNK
     Dates: start: 20090502, end: 20090604

REACTIONS (1)
  - STEVENS-JOHNSON SYNDROME [None]
